FAERS Safety Report 6084860-7 (Version None)
Quarter: 2009Q1

REPORT INFORMATION
  Report Type: 
  Country: None (occurrence: None)
  Receive Date: 20090218
  Receipt Date: 20090202
  Transmission Date: 20090719
  Serious: Yes (Hospitalization)
  Sender: FDA-Public Use
  Company Number: DSA_33226_2009

PATIENT
  Sex: Male

DRUGS (8)
  1. ATIVAN [Suspect]
     Indication: AGITATION
     Dosage: (ORAL)
     Route: 048
     Dates: start: 20081127, end: 20090119
  2. ATIVAN [Suspect]
     Indication: ANXIETY
     Dosage: (ORAL)
     Route: 048
     Dates: start: 20081127, end: 20090119
  3. BLINDED THEAPY FOR BAPINEUZUMAB [Suspect]
     Indication: DEMENTIA ALZHEIMER'S TYPE
     Dosage: (DF)
     Dates: start: 20081223, end: 20081223
  4. NAMENDA [Concomitant]
  5. ARICEPT [Concomitant]
  6. ASPIRIN [Concomitant]
  7. MOBIC [Concomitant]
  8. CELEXA [Concomitant]

REACTIONS (7)
  - ABNORMAL BEHAVIOUR [None]
  - AGITATION [None]
  - BALANCE DISORDER [None]
  - BLOOD THYROID STIMULATING HORMONE INCREASED [None]
  - CEREBRAL ATROPHY [None]
  - DEHYDRATION [None]
  - PARANASAL SINUS MUCOSAL HYPERTROPHY [None]
